FAERS Safety Report 19798645 (Version 1)
Quarter: 2021Q3

REPORT INFORMATION
  Report Type: Spontaneous
  Country: US (occurrence: US)
  Receive Date: 20210907
  Receipt Date: 20210907
  Transmission Date: 20211014
  Serious: Yes (Other)
  Sender: FDA-Public Use
  Company Number: US-PFIZER INC-202101116822

PATIENT
  Age: 58 Year
  Sex: Female

DRUGS (1)
  1. RETACRIT [Suspect]
     Active Substance: EPOETIN ALFA-EPBX
     Dosage: UNK

REACTIONS (4)
  - Chronic kidney disease [Unknown]
  - Antiphospholipid syndrome [Unknown]
  - Cerebrovascular accident [Unknown]
  - Confusional state [Unknown]
